FAERS Safety Report 23159583 (Version 2)
Quarter: 2023Q4

REPORT INFORMATION
  Report Type: Spontaneous
  Country: FR (occurrence: FR)
  Receive Date: 20231108
  Receipt Date: 20231121
  Transmission Date: 20240109
  Serious: Yes (Hospitalization, Other)
  Sender: FDA-Public Use
  Company Number: None

PATIENT
  Age: 18 Year
  Sex: Male
  Weight: 62 kg

DRUGS (6)
  1. DOXORUBICIN [Suspect]
     Active Substance: DOXORUBICIN
     Indication: B-cell lymphoma
     Dosage: DOSAGE NOT SPECIFIED C1 26/09/2023 C2 12/10/2023
     Route: 042
     Dates: start: 20230926
  2. CYCLOPHOSPHAMIDE [Suspect]
     Active Substance: CYCLOPHOSPHAMIDE
     Indication: B-cell lymphoma
     Dosage: DOSAGE NOT SPECIFIED C1 26/09/2023 C2 12/10/2023
     Route: 042
     Dates: start: 20230926
  3. VINCRISTINE SULFATE [Suspect]
     Active Substance: VINCRISTINE SULFATE
     Indication: B-cell lymphoma
     Dosage: DOSAGE NOT SPECIFIED C1 26/09/2023 C2 12/10/2023
     Route: 042
     Dates: start: 20230926
  4. PREDNISONE [Suspect]
     Active Substance: PREDNISONE
     Indication: B-cell lymphoma
     Dosage: DOSAGE NOT SPECIFIED C1 26/09/2023 C2 12/10/2023
     Route: 048
     Dates: start: 20230926
  5. BACTRIM [Suspect]
     Active Substance: SULFAMETHOXAZOLE\TRIMETHOPRIM
     Indication: Prophylaxis
     Dosage: 1 DOSAGE FORM, EVERY 2 DAYS
     Route: 048
     Dates: start: 20230926, end: 20231013
  6. RITUXIMAB [Suspect]
     Active Substance: RITUXIMAB
     Indication: B-cell lymphoma
     Dosage: DOSAGE NOT SPECIFIED C1 26/09/2023 C2 12/10/2023, (MAMMAL/HAMSTER/CHO CELLS)
     Route: 042
     Dates: start: 20230926

REACTIONS (1)
  - Pancreatitis acute [Recovered/Resolved]

NARRATIVE: CASE EVENT DATE: 20231013
